FAERS Safety Report 5116969-6 (Version None)
Quarter: 2006Q3

REPORT INFORMATION
  Report Type: 
  Country: None (occurrence: None)
  Receive Date: 20060922
  Receipt Date: 20060914
  Transmission Date: 20061208
  Serious: Yes (Death)
  Sender: FDA-Public Use
  Company Number: 2006-147390-NL

PATIENT
  Age: 76 Year
  Sex: Female

DRUGS (13)
  1. DANAPAROID SODIUM [Suspect]
     Indication: HEPARIN-INDUCED THROMBOCYTOPENIA
     Dosage: 675 MG INTRAVENOUS (NOS)
     Route: 042
     Dates: start: 20060830, end: 20060831
  2. HEPARIN [Concomitant]
  3. HYDROCORTISON [Concomitant]
  4. MEROPENEM [Concomitant]
  5. NOREPINEPHRINE HYDROCHLORIDE [Concomitant]
  6. KETAREST [Concomitant]
  7. INSULIN HUMAN [Concomitant]
  8. SUFENTANIL CITRATE [Concomitant]
  9. ESOMEPRAZOLE CITRATE [Concomitant]
  10. METHYLPREDNISOLONE [Concomitant]
  11. LEVOFLOXACIN [Concomitant]
  12. FLUCONAZOLE [Concomitant]
  13. MIDAZOLAM HYDROCHLORIDE [Concomitant]

REACTIONS (3)
  - CATHETER SITE HAEMORRHAGE [None]
  - EPISTAXIS [None]
  - MOUTH HAEMORRHAGE [None]
